FAERS Safety Report 6549665-9 (Version None)
Quarter: 2010Q1

REPORT INFORMATION
  Report Type: 
  Country: None (occurrence: None)
  Receive Date: 20100125
  Receipt Date: 20100118
  Transmission Date: 20100710
  Serious: Yes (Hospitalization)
  Sender: FDA-Public Use
  Company Number: US-BAYER-201010701BCC

PATIENT
  Age: 31 Year
  Sex: Female

DRUGS (1)
  1. ALEVE (CAPLET) [Suspect]
     Indication: SUICIDE ATTEMPT
     Dosage: TOOK 10 TO 15 CAPLETS
     Route: 048
     Dates: start: 20100116

REACTIONS (1)
  - VOMITING [None]
